FAERS Safety Report 18025587 (Version 1)
Quarter: 2020Q3

REPORT INFORMATION
  Report Type: Spontaneous
  Country: FR (occurrence: FR)
  Receive Date: 20200715
  Receipt Date: 20200715
  Transmission Date: 20201104
  Serious: Yes (Other)
  Sender: FDA-Public Use
  Company Number: FR-ROCHE-2641962

PATIENT
  Sex: Female
  Weight: 3.5 kg

DRUGS (4)
  1. ALECTINIB. [Suspect]
     Active Substance: ALECTINIB
     Indication: LUNG ADENOCARCINOMA
     Dosage: ONGOING TREATMENT
     Route: 048
     Dates: start: 20190124
  2. VENTOLINE [Concomitant]
     Active Substance: ALBUTEROL
     Indication: ASTHMA
     Dosage: ON DEMAND
     Route: 055
  3. SERETIDE [Concomitant]
     Active Substance: FLUTICASONE PROPIONATE\SALMETEROL XINAFOATE
     Indication: ASTHMA
     Route: 055
  4. AERIUS [Concomitant]
     Indication: ASTHMA
     Route: 048

REACTIONS (3)
  - Choanal atresia [Not Recovered/Not Resolved]
  - Foetal exposure during pregnancy [Unknown]
  - Haemangioma [Not Recovered/Not Resolved]
